FAERS Safety Report 8215810-2 (Version None)
Quarter: 2012Q1

REPORT INFORMATION
  Report Type: 
  Country: None (occurrence: None)
  Receive Date: 20120316
  Receipt Date: 20120309
  Transmission Date: 20120608
  Serious: Yes (Other)
  Sender: FDA-Public Use
  Company Number: JP-ABBOTT-12P-087-0903986-00

PATIENT
  Sex: Female
  Weight: 48 kg

DRUGS (7)
  1. HUMIRA [Suspect]
     Dates: start: 20110324, end: 20110324
  2. HUMIRA [Suspect]
     Dates: start: 20110408, end: 20110623
  3. POLYFUL [Suspect]
     Indication: CROHN'S DISEASE
     Route: 048
     Dates: start: 20110520, end: 20110630
  4. CLOSTRIDIUM BUTYRICUM [Concomitant]
     Indication: CROHN'S DISEASE
     Route: 048
  5. MESALAMINE [Concomitant]
     Indication: CROHN'S DISEASE
     Route: 048
  6. HUMIRA [Suspect]
     Indication: CROHN'S DISEASE
     Route: 058
     Dates: start: 20110311, end: 20110611
  7. FERROUS CITRATE [Concomitant]
     Indication: PRODUCT USED FOR UNKNOWN INDICATION

REACTIONS (1)
  - ABORTION [None]
